FAERS Safety Report 10060040 (Version 1)
Quarter: 2014Q2

REPORT INFORMATION
  Report Type: Spontaneous
  Country: US (occurrence: US)
  Receive Date: 20140404
  Receipt Date: 20140404
  Transmission Date: 20141212
  Serious: No
  Sender: FDA-Public Use
  Company Number: US-GLAXOSMITHKLINE-A1053194A

PATIENT
  Age: 60 Year
  Sex: Female

DRUGS (1)
  1. ALLI [Suspect]
     Indication: WEIGHT DECREASED
     Dates: start: 201311, end: 20131211

REACTIONS (11)
  - Drug ineffective [Not Recovered/Not Resolved]
  - Steatorrhoea [Unknown]
  - Abdominal distension [Unknown]
  - Change of bowel habit [Unknown]
  - Abdominal pain upper [Unknown]
  - Pain [Unknown]
  - Insomnia [Unknown]
  - Abdominal discomfort [Unknown]
  - Product quality issue [Unknown]
  - General physical health deterioration [Unknown]
  - Ill-defined disorder [Unknown]
